FAERS Safety Report 5332936-1 (Version None)
Quarter: 2007Q1

REPORT INFORMATION
  Report Type: 
  Country: None (occurrence: None)
  Receive Date: 20070306
  Receipt Date: 20060828
  Transmission Date: 20070707
  Serious: Yes (Hospitalization)
  Sender: FDA-Public Use
  Company Number: A03200605452

PATIENT
  Age: 62 Year
  Sex: Female
  Weight: 79.36 kg

DRUGS (4)
  1. PLAVIX [Suspect]
     Indication: STENT PLACEMENT
     Dosage: 75 MG QD - ORAL
     Route: 048
     Dates: start: 20050601, end: 20060101
  2. ASPIRIN [Suspect]
     Indication: STENT PLACEMENT
     Dosage: ORAL
     Route: 048
     Dates: start: 20050601
  3. VERAPAMIL [Concomitant]
  4. LOTREL [Concomitant]

REACTIONS (8)
  - COLLAPSE OF LUNG [None]
  - DYSPEPSIA [None]
  - DYSPNOEA [None]
  - HAEMOPTYSIS [None]
  - MOUTH HAEMORRHAGE [None]
  - OXYGEN SATURATION DECREASED [None]
  - PULMONARY HAEMORRHAGE [None]
  - RENAL HAEMORRHAGE [None]
